FAERS Safety Report 9643188 (Version 1)
Quarter: 2013Q4

REPORT INFORMATION
  Report Type: Spontaneous
  Country: US (occurrence: US)
  Receive Date: 20131024
  Receipt Date: 20131024
  Transmission Date: 20140711
  Serious: No
  Sender: FDA-Public Use
  Company Number: US-GLAXOSMITHKLINE-A0999742A

PATIENT
  Age: 14 Year
  Sex: Female

DRUGS (2)
  1. DUAC [Suspect]
     Indication: ACNE
     Route: 061
     Dates: start: 20090109, end: 20120905
  2. TAZORAC [Concomitant]

REACTIONS (5)
  - Abdominal pain [Recovering/Resolving]
  - Diarrhoea [Recovering/Resolving]
  - Menstrual disorder [Not Recovered/Not Resolved]
  - Nightmare [Recovering/Resolving]
  - Arthralgia [Recovering/Resolving]
